FAERS Safety Report 6249546-4 (Version None)
Quarter: 2009Q2

REPORT INFORMATION
  Report Type: 
  Country: None (occurrence: None)
  Receive Date: 20090625
  Receipt Date: 20090615
  Transmission Date: 20091009
  Serious: No
  Sender: FDA-Public Use
  Company Number: 2009-198757-NL

PATIENT
  Age: 87 Year
  Sex: Female

DRUGS (7)
  1. MIRTAZAPINE [Suspect]
     Indication: DEPRESSION
     Dosage: 15 MG/30 MG ORAL
     Route: 048
     Dates: start: 20090220, end: 20090222
  2. MIRTAZAPINE [Suspect]
     Indication: DEPRESSION
     Dosage: 15 MG/30 MG ORAL
     Route: 048
     Dates: start: 20090223
  3. CITALOPRAM HYDROBROMIDE [Suspect]
     Dosage: 10 MG/20 MG ORAL
     Route: 048
     Dates: start: 20090225, end: 20090301
  4. CITALOPRAM HYDROBROMIDE [Suspect]
     Dosage: 10 MG/20 MG ORAL
     Route: 048
     Dates: start: 20090302, end: 20090307
  5. DELIX PLUS [Suspect]
     Indication: HYPERTENSION
     Dosage: DF ORAL
     Route: 048
     Dates: start: 20090224, end: 20090306
  6. ZOPICLONE [Concomitant]
  7. YEAST DRIED [Concomitant]

REACTIONS (2)
  - CONVULSION [None]
  - HYPONATRAEMIA [None]
